FAERS Safety Report 22038406 (Version 1)
Quarter: 2023Q1

REPORT INFORMATION
  Report Type: Spontaneous
  Country: CA (occurrence: CA)
  Receive Date: 20230227
  Receipt Date: 20230227
  Transmission Date: 20230418
  Serious: Yes (Other)
  Sender: FDA-Public Use
  Company Number: CA-STERISCIENCE B.V.-2023-ST-000935

PATIENT
  Sex: Male

DRUGS (7)
  1. LABETALOL [Suspect]
     Active Substance: LABETALOL\LABETALOL HYDROCHLORIDE
     Indication: Product used for unknown indication
     Dosage: THE PATIENT^S MOTHER DOSE WAS 100 MILLIGRAM, TWICE A DAY
     Route: 064
  2. LABETALOL [Suspect]
     Active Substance: LABETALOL\LABETALOL HYDROCHLORIDE
     Dosage: THE PATIENT^S MOTHER DOSE WAS 200 MILLIGRAM, QIDTWICE A DAY
     Route: 064
  3. POTASSIUM [Suspect]
     Active Substance: POTASSIUM
     Indication: Product used for unknown indication
     Dosage: THE PATIENT^S MOTHER DOSE WAS HIGH
     Route: 064
  4. POTASSIUM [Suspect]
     Active Substance: POTASSIUM
     Dosage: THE PATIENT^S MOTHER DOSE WAS HIGH
     Route: 064
  5. NIFEDIPINE [Suspect]
     Active Substance: NIFEDIPINE
     Indication: Product used for unknown indication
     Dosage: PATIENT^S MOTHER DOSE WAS 30 MILLIGRAM, EVERY 12 HOURS
     Route: 064
  6. NIFEDIPINE [Suspect]
     Active Substance: NIFEDIPINE
     Dosage: PATIENT^S MOTHER DOSE WAS 60 MILLIGRAM
     Route: 064
  7. EPLERENONE [Suspect]
     Active Substance: EPLERENONE
     Indication: Product used for unknown indication
     Dosage: PATIENT^S MOTHER DOSE WAS 25 MILLIGRAM, TWICE A DAY
     Route: 064

REACTIONS (2)
  - Premature baby [Unknown]
  - Foetal exposure during pregnancy [Unknown]
